FAERS Safety Report 8873707 (Version 2)
Quarter: 2013Q3

REPORT INFORMATION
  Report Type: Spontaneous
  Country: US (occurrence: US)
  Receive Date: 20121026
  Receipt Date: 20130804
  Transmission Date: 20140515
  Serious: No
  Sender: FDA-Public Use
  Company Number: US-B.I. PHARMACEUTICALS,INC./RIDGEFIELD-2012-BP-26007BP

PATIENT
  Age: 64 Year
  Sex: Male

DRUGS (12)
  1. COMBIVENT [Suspect]
     Indication: CHRONIC OBSTRUCTIVE PULMONARY DISEASE
     Route: 055
  2. COMBIVENT [Suspect]
     Indication: CHRONIC OBSTRUCTIVE PULMONARY DISEASE
     Dosage: STRENGTH-20 MCG / 100MCG, DAILY DOSE-80MCG/400MCG
     Route: 055
     Dates: start: 20130725
  3. CELEBREX [Concomitant]
     Indication: BACK INJURY
  4. BUSPAR [Concomitant]
     Indication: PANIC ATTACK
     Dosage: 15 MG
     Route: 048
  5. ASPIRIN [Concomitant]
     Dosage: 162 MG
     Route: 048
  6. PRESERVISION [Concomitant]
     Indication: MACULAR DEGENERATION
     Route: 048
  7. CARVEDILOL [Concomitant]
     Indication: HYPERTENSION
     Dosage: 25 MG
     Route: 048
  8. LANOXIN [Concomitant]
     Indication: ARRHYTHMIA
     Dosage: 0.25 MG
     Route: 048
  9. WARFARIN [Concomitant]
     Dosage: 5 MG 4 DAYS EACH WEEK AND 2.5 MG 3 DAYS EACH
     Route: 048
  10. CLOPIDOGREL [Concomitant]
     Dosage: 75 MG
     Route: 048
  11. PRAVASTATIN [Concomitant]
     Indication: BLOOD CHOLESTEROL INCREASED
     Dosage: 40 MG
     Route: 048
  12. TRAZADONE [Concomitant]
     Indication: INSOMNIA
     Dosage: 200 MG
     Route: 048

REACTIONS (5)
  - Hypoaesthesia [Unknown]
  - Pain in extremity [Unknown]
  - Arthritis [Unknown]
  - Claustrophobia [Not Recovered/Not Resolved]
  - Panic attack [Recovered/Resolved]
